FAERS Safety Report 22097863 (Version 1)
Quarter: 2023Q1

REPORT INFORMATION
  Report Type: Spontaneous
  Country: GB (occurrence: GB)
  Receive Date: 20230315
  Receipt Date: 20230315
  Transmission Date: 20230417
  Serious: Yes (Other)
  Sender: FDA-Public Use
  Company Number: None

PATIENT

DRUGS (2)
  1. BENZOYL PEROXIDE\CLINDAMYCIN PHOSPHATE [Suspect]
     Active Substance: BENZOYL PEROXIDE\CLINDAMYCIN PHOSPHATE
     Indication: Product used for unknown indication
     Dosage: UNK (BENZOYL PEROXIDE 5% / CLINDAMYCIN 1% GEL)
     Route: 065
  2. DUAC [Concomitant]
     Active Substance: BENZOYL PEROXIDE\CLINDAMYCIN PHOSPHATE
     Indication: Product used for unknown indication
     Dosage: 1 DF, QD (12 WEEK COURSE)
     Route: 065
     Dates: start: 20230121

REACTIONS (3)
  - Urticaria [Recovering/Resolving]
  - Swelling face [Unknown]
  - Hypersensitivity [Unknown]
